FAERS Safety Report 7200992-1 (Version None)
Quarter: 2010Q4

REPORT INFORMATION
  Report Type: 
  Country: None (occurrence: None)
  Receive Date: 20101228
  Receipt Date: 20101223
  Transmission Date: 20110411
  Serious: Yes (Other)
  Sender: FDA-Public Use
  Company Number: US-AMGEN-QUU432762

PATIENT

DRUGS (3)
  1. NPLATE [Suspect]
     Indication: IDIOPATHIC THROMBOCYTOPENIC PURPURA
     Dosage: 265 A?G, QWK
     Route: 058
     Dates: start: 20100308, end: 20100422
  2. PLATELETS [Concomitant]
     Dosage: UNK
     Dates: start: 20100422, end: 20100422
  3. DEXAMETHASONE [Concomitant]
     Indication: IDIOPATHIC THROMBOCYTOPENIC PURPURA
     Dosage: UNK
     Dates: start: 20100211

REACTIONS (1)
  - DRUG INEFFECTIVE [None]
